FAERS Safety Report 7706506-1 (Version None)
Quarter: 2011Q3

REPORT INFORMATION
  Report Type: 
  Country: None (occurrence: None)
  Receive Date: 20110824
  Receipt Date: 20110822
  Transmission Date: 20111222
  Serious: Yes (Congenital Anomaly)
  Sender: FDA-Public Use
  Company Number: JP-PFIZER INC-2011170021

PATIENT
  Sex: Female

DRUGS (5)
  1. ZOLOFT [Suspect]
     Dosage: 50 MG/DAY
     Route: 064
     Dates: start: 20100621, end: 20100817
  2. MEILAX [Suspect]
     Indication: ANXIETY DISORDER
     Dosage: 1 MG/DAY
     Route: 064
     Dates: start: 20100510
  3. DEPAS [Suspect]
     Indication: ANXIETY DISORDER
     Dosage: 0.5 MG/DAY
     Route: 064
     Dates: start: 20100720
  4. ZOLOFT [Suspect]
     Indication: ANXIETY DISORDER
     Dosage: 25 MG/DAY
     Route: 064
     Dates: start: 20100608, end: 20100620
  5. ZOLOFT [Suspect]
     Dosage: 25 MG/DAY
     Route: 064
     Dates: start: 20100818

REACTIONS (2)
  - CLEFT LIP AND PALATE [None]
  - MATERNAL EXPOSURE DURING PREGNANCY [None]
